FAERS Safety Report 8787257 (Version 1)
Quarter: 2012Q4

REPORT INFORMATION
  Report Type: 
  Country: NL (occurrence: NL)
  Receive Date: 20120914
  Receipt Date: 20120914
  Transmission Date: 20130627
  Serious: Yes (Life-Threatening)
  Sender: FDA-Public Use
  Company Number: NL-AMGEN-NLDSP2012057255

PATIENT
  Age: 75 Year
  Sex: Female
  Weight: 45 kg

DRUGS (2)
  1. ENBREL [Suspect]
     Indication: RHEUMATOID ARTHRITIS
     Dosage: 50 mg, UNK
     Route: 065
     Dates: start: 20100820, end: 20120714
  2. METHOTREXATE [Concomitant]
     Dosage: 2.5 mg, UNK
     Dates: start: 19960101

REACTIONS (1)
  - Lung neoplasm malignant [Not Recovered/Not Resolved]
